FAERS Safety Report 5133131-1 (Version None)
Quarter: 2006Q4

REPORT INFORMATION
  Report Type: 
  Country: None (occurrence: None)
  Receive Date: 20061017
  Receipt Date: 20061013
  Transmission Date: 20070319
  Serious: Yes (Hospitalization, Other)
  Sender: FDA-Public Use
  Company Number: BEWYE361521JAN05

PATIENT
  Age: 35 Year
  Sex: Male

DRUGS (18)
  1. SIROLIMUS (SIROLIMUS, TABLET, 0) LOT NO.: UNK [Suspect]
     Indication: PROPHYLAXIS AGAINST TRANSPLANT REJECTION
     Dosage: 15 MG 1X PER 1 DAY; ORAL
     Route: 048
     Dates: start: 20041024, end: 20041024
  2. SIROLIMUS (SIROLIMUS, TABLET, 0) LOT NO.: UNK [Suspect]
     Dosage: 5MG 1X PER 1 DAY; ORAL (SEE IMAGE)
     Route: 048
     Dates: start: 20041025, end: 20041027
  3. SIROLIMUS (SIROLIMUS, TABLET, 0) LOT NO.: UNK [Suspect]
     Dosage: 5MG 1X PER 1 DAY; ORAL (SEE IMAGE)
     Route: 048
     Dates: start: 20041028, end: 20041028
  4. SIROLIMUS (SIROLIMUS, TABLET, 0) LOT NO.: UNK [Suspect]
     Dosage: 5MG 1X PER 1 DAY; ORAL (SEE IMAGE)
     Route: 048
     Dates: start: 20041029, end: 20041105
  5. SIROLIMUS (SIROLIMUS, TABLET, 0) LOT NO.: UNK [Suspect]
     Dosage: 5MG 1X PER 1 DAY; ORAL (SEE IMAGE)
     Route: 048
     Dates: start: 20041106, end: 20050123
  6. MYCOPHENOLATE MOFETIL [Concomitant]
  7. . [Concomitant]
  8. . [Concomitant]
  9. ATG (ANTILYMPHOCYTE IMMUNOGLOBULIN (HORSE)), [Concomitant]
  10. SOLU-MEDROL [Concomitant]
  11. . [Concomitant]
  12. . [Concomitant]
  13. . [Concomitant]
  14. MEDROL [Concomitant]
  15. . [Concomitant]
  16. . [Concomitant]
  17. . [Concomitant]
  18. . [Concomitant]

REACTIONS (1)
  - KIDNEY TRANSPLANT REJECTION [None]
